FAERS Safety Report 4786924-4 (Version None)
Quarter: 2005Q3

REPORT INFORMATION
  Report Type: 
  Country: None (occurrence: None)
  Receive Date: 20050930
  Receipt Date: 20050913
  Transmission Date: 20060218
  Serious: Yes (Other)
  Sender: FDA-Public Use
  Company Number: USA050496532

PATIENT
  Age: 48 Year
  Sex: Female

DRUGS (5)
  1. CYMBALTA [Suspect]
     Indication: DEPRESSION
     Dosage: 60MG
     Dates: start: 20041204, end: 20050503
  2. STRATTERA [Concomitant]
  3. LAMICTAL [Concomitant]
  4. KLONOPIN [Concomitant]
  5. NAMENDA [Concomitant]

REACTIONS (1)
  - HYPERTENSION [None]
